FAERS Safety Report 25319266 (Version 1)
Quarter: 2025Q2

REPORT INFORMATION
  Report Type: Spontaneous
  Country: JP (occurrence: JP)
  Receive Date: 20250515
  Receipt Date: 20250515
  Transmission Date: 20250716
  Serious: Yes (Other)
  Sender: PFIZER
  Company Number: JP-PFIZER INC-PV202500057420

PATIENT

DRUGS (1)
  1. LORBRENA [Suspect]
     Active Substance: LORLATINIB
     Route: 048

REACTIONS (3)
  - Brain radiation necrosis [Not Recovered/Not Resolved]
  - Communication disorder [Not Recovered/Not Resolved]
  - Nervous system disorder [Unknown]
